FAERS Safety Report 23899643 (Version 1)
Quarter: 2024Q2

REPORT INFORMATION
  Report Type: Spontaneous
  Country: US (occurrence: None)
  Receive Date: 20240526
  Receipt Date: 20240526
  Transmission Date: 20240716
  Serious: No
  Sender: FDA-Public Use
  Company Number: US-ROCHE-3339666

PATIENT
  Sex: Male
  Weight: 110.32 kg

DRUGS (1)
  1. ACTEMRA [Suspect]
     Active Substance: TOCILIZUMAB
     Indication: Rheumatoid arthritis
     Route: 058
     Dates: start: 20230317, end: 20230421

REACTIONS (4)
  - Injection site pruritus [Not Recovered/Not Resolved]
  - Swelling [Recovering/Resolving]
  - Injection site warmth [Recovering/Resolving]
  - Erythema [Recovering/Resolving]

NARRATIVE: CASE EVENT DATE: 20230414
